FAERS Safety Report 23230287 (Version 3)
Quarter: 2025Q2

REPORT INFORMATION
  Report Type: Report from Study
  Country: KR (occurrence: KR)
  Receive Date: 20231127
  Receipt Date: 20250520
  Transmission Date: 20250717
  Serious: Yes (Other)
  Sender: TAKEDA
  Company Number: KR-TAKEDA-2023TUS113521

PATIENT
  Sex: Female

DRUGS (8)
  1. BRIGATINIB [Suspect]
     Active Substance: BRIGATINIB
     Indication: Non-small cell lung cancer
     Dosage: 90 MILLIGRAM, QD
     Dates: start: 20220622, end: 20220703
  2. BRIGATINIB [Suspect]
     Active Substance: BRIGATINIB
     Dosage: 180 MILLIGRAM, QD
     Dates: start: 20220704, end: 20221010
  3. BRIGATINIB [Suspect]
     Active Substance: BRIGATINIB
     Dosage: 180 MILLIGRAM, QD
     Dates: start: 20221024, end: 20230630
  4. Sulfolase [Concomitant]
     Indication: Chronic obstructive pulmonary disease
  5. Pennel [Concomitant]
     Indication: Aspartate aminotransferase increased
  6. MEGESTROL ACETATE [Concomitant]
     Active Substance: MEGESTROL ACETATE
     Indication: Prophylaxis
     Dosage: 5.2 MILLIGRAM, QD
     Dates: start: 20220526
  7. LOPERAMIDE [Concomitant]
     Active Substance: LOPERAMIDE
     Indication: Diarrhoea
     Dates: start: 20220704, end: 20230412
  8. B max gold [Concomitant]
     Indication: Prophylaxis

REACTIONS (1)
  - Delirium [Recovered/Resolved]

NARRATIVE: CASE EVENT DATE: 20221010
